FAERS Safety Report 12776907 (Version 3)
Quarter: 2016Q4

REPORT INFORMATION
  Report Type: Spontaneous
  Country: US (occurrence: US)
  Receive Date: 20160923
  Receipt Date: 20161121
  Transmission Date: 20170207
  Serious: Yes (Life-Threatening, Other)
  Sender: FDA-Public Use
  Company Number: US-009507513-1609USA010724

PATIENT
  Age: 63 Year
  Sex: Female
  Weight: 117.46 kg

DRUGS (2)
  1. KEYTRUDA [Suspect]
     Active Substance: PEMBROLIZUMAB
     Indication: NEUROENDOCRINE CARCINOMA OF THE SKIN
     Dosage: 240 MG, Q3W
     Route: 042
     Dates: start: 20160304, end: 20160805
  2. KEYTRUDA [Suspect]
     Active Substance: PEMBROLIZUMAB
     Dosage: 240 MG, Q3W
     Route: 042
     Dates: start: 2016

REACTIONS (3)
  - Malignant neoplasm progression [Recovering/Resolving]
  - Swelling [Unknown]
  - Product use issue [Unknown]

NARRATIVE: CASE EVENT DATE: 2016
